FAERS Safety Report 20771268 (Version 1)
Quarter: 2022Q2

REPORT INFORMATION
  Report Type: Spontaneous
  Country: US (occurrence: US)
  Receive Date: 20220429
  Receipt Date: 20220429
  Transmission Date: 20220721
  Serious: No
  Sender: FDA-Public Use
  Company Number: US-INCYTE CORPORATION-2022IN003936

PATIENT

DRUGS (2)
  1. JAKAFI [Suspect]
     Active Substance: RUXOLITINIB
     Indication: Myelofibrosis
     Dosage: TWO TABLETS A DAY
     Route: 065
     Dates: start: 20220409
  2. JAKAFI [Suspect]
     Active Substance: RUXOLITINIB
     Dosage: ONCE A DAY
     Route: 065
     Dates: start: 20220413

REACTIONS (3)
  - Full blood count increased [Unknown]
  - White blood cell count abnormal [Unknown]
  - Platelet count decreased [Not Recovered/Not Resolved]

NARRATIVE: CASE EVENT DATE: 20220421
